FAERS Safety Report 23142713 (Version 1)
Quarter: 2023Q4

REPORT INFORMATION
  Report Type: Spontaneous
  Country: None (occurrence: US)
  Receive Date: 20231103
  Receipt Date: 20231103
  Transmission Date: 20240110
  Serious: Yes (Other)
  Sender: FDA-Public Use
  Company Number: US-GREER Laboratories, Inc.-2147765

PATIENT
  Age: 55 Year
  Sex: Female
  Weight: 73.636 kg

DRUGS (22)
  1. PHLEUM PRATENSE POLLEN [Suspect]
     Active Substance: PHLEUM PRATENSE POLLEN
     Indication: Product used for unknown indication
     Route: 023
     Dates: start: 20231013, end: 20231013
  2. STANDARDIZED MEADOW FESCUE GRASS POLLEN [Suspect]
     Active Substance: FESTUCA PRATENSIS POLLEN
     Route: 023
     Dates: start: 20231013, end: 20231013
  3. CURVULARIA SPICIFERA [Suspect]
     Active Substance: COCHLIOBOLUS SPICIFER
     Route: 023
     Dates: start: 20231013, end: 20231013
  4. CANDIDA ALBICANS [Suspect]
     Active Substance: CANDIDA ALBICANS
     Route: 023
     Dates: start: 20231013, end: 20231013
  5. EPICOCCUM NIGRUM [Suspect]
     Active Substance: EPICOCCUM NIGRUM
     Route: 023
     Dates: start: 20231013, end: 20231013
  6. HORSE EPITHELIA [Suspect]
     Active Substance: EQUUS CABALLUS SKIN
     Route: 023
     Dates: start: 20231013, end: 20231013
  7. EASTERN OAK POLLEN MIX [Suspect]
     Active Substance: QUERCUS ALBA POLLEN\QUERCUS RUBRA POLLEN\QUERCUS VELUTINA POLLEN
     Route: 023
     Dates: start: 20231013, end: 20231013
  8. PECAN POLLEN [Suspect]
     Active Substance: CARYA ILLINOINENSIS POLLEN
     Route: 023
     Dates: start: 20231013, end: 20231013
  9. AMERICAN SYCAMORE POLLEN [Suspect]
     Active Substance: PLATANUS OCCIDENTALIS POLLEN
     Route: 023
     Dates: start: 20231013, end: 20231013
  10. MAPLE-BOX ELDER POLLEN MIX [Suspect]
     Active Substance: ACER NEGUNDO POLLEN\ACER SACCHARUM POLLEN
     Route: 023
     Dates: start: 20231013, end: 20231013
  11. EASTERN COTTONWOOD POLLEN [Suspect]
     Active Substance: POPULUS DELTOIDES POLLEN
     Route: 023
     Dates: start: 20231013, end: 20231013
  12. WHITE ASH POLLEN [Suspect]
     Active Substance: FRAXINUS AMERICANA POLLEN
     Route: 023
     Dates: start: 20231013, end: 20231013
  13. SWEETGUM POLLEN [Suspect]
     Active Substance: LIQUIDAMBAR STYRACIFLUA POLLEN
     Route: 023
     Dates: start: 20231013, end: 20231013
  14. RED MULBERRY POLLEN [Suspect]
     Active Substance: MORUS RUBRA POLLEN
     Route: 023
     Dates: start: 20231013, end: 20231013
  15. RIVER BIRCH POLLEN [Suspect]
     Active Substance: BETULA NIGRA POLLEN
     Route: 023
     Dates: start: 20231013, end: 20231013
  16. BAHIA GRASS POLLEN [Suspect]
     Active Substance: PASPALUM NOTATUM POLLEN
     Route: 023
     Dates: start: 20231013, end: 20231013
  17. JOHNSON GRASS POLLEN [Suspect]
     Active Substance: SORGHUM HALEPENSE POLLEN
     Route: 023
     Dates: start: 20231013, end: 20231013
  18. SHORT/GIANT RAGWEED MIXTURE [Suspect]
     Active Substance: AMBROSIA ARTEMISIIFOLIA POLLEN\AMBROSIA TRIFIDA POLLEN
     Route: 023
     Dates: start: 20231013, end: 20231013
  19. ENGLISH PLANTAIN POLLEN [Suspect]
     Active Substance: PLANTAGO LANCEOLATA POLLEN
     Route: 023
     Dates: start: 20231013, end: 20231013
  20. COCKLEBUR POLLEN [Suspect]
     Active Substance: XANTHIUM STRUMARIUM POLLEN
     Route: 023
     Dates: start: 20231013, end: 20231013
  21. DOCK-SORREL MIX [Suspect]
     Active Substance: RUMEX ACETOSELLA POLLEN\RUMEX CRISPUS POLLEN
     Route: 023
     Dates: start: 20231013, end: 20231013
  22. TRUE ROUGH MARSH ELDER [Suspect]
     Active Substance: IVA ANNUA POLLEN
     Route: 023
     Dates: start: 20231013, end: 20231013

REACTIONS (1)
  - Anaphylactic reaction [Recovered/Resolved]

NARRATIVE: CASE EVENT DATE: 20231013
